FAERS Safety Report 9701279 (Version 1)
Quarter: 2013Q4

REPORT INFORMATION
  Report Type: Spontaneous
  Country: US (occurrence: US)
  Receive Date: 20131121
  Receipt Date: 20131121
  Transmission Date: 20140711
  Serious: No
  Sender: FDA-Public Use
  Company Number: US-GILEAD-2008-0016353

PATIENT
  Sex: Female
  Weight: 68.04 kg

DRUGS (10)
  1. LETAIRIS [Suspect]
     Indication: COR PULMONALE CHRONIC
     Route: 048
     Dates: start: 20080414
  2. COREG [Concomitant]
     Route: 048
  3. LASIX [Concomitant]
     Route: 048
  4. COUMADIN [Concomitant]
     Route: 048
  5. LIPITOR [Concomitant]
     Route: 048
  6. QUINAPRIL [Concomitant]
     Route: 048
  7. METOLAZONE [Concomitant]
     Route: 048
  8. GLYBURIDE [Concomitant]
     Route: 048
  9. DIGOXIN [Concomitant]
     Route: 048
  10. MAG-OX [Concomitant]
     Route: 048

REACTIONS (3)
  - Swelling [Unknown]
  - Chest pain [Unknown]
  - Dyspnoea [Unknown]
